FAERS Safety Report 5875158-8 (Version None)
Quarter: 2008Q3

REPORT INFORMATION
  Report Type: 
  Country: None (occurrence: None)
  Receive Date: 20080909
  Receipt Date: 20080905
  Transmission Date: 20090109
  Serious: Yes (Hospitalization)
  Sender: FDA-Public Use
  Company Number: US-ASTRAZENECA-2008UW18277

PATIENT
  Age: 27329 Day
  Sex: Female
  Weight: 73.9 kg

DRUGS (2)
  1. ARIMIDEX [Suspect]
     Indication: BREAST CANCER
     Route: 048
     Dates: start: 20080830, end: 20080902
  2. AVASTIN [Suspect]
     Dosage: 10 MG/KG
     Dates: end: 20080820

REACTIONS (3)
  - HYPOKALAEMIA [None]
  - SOMNOLENCE [None]
  - SYNCOPE [None]
